FAERS Safety Report 7301235-0 (Version None)
Quarter: 2011Q1

REPORT INFORMATION
  Report Type: 
  Country: None (occurrence: None)
  Receive Date: 20110112
  Receipt Date: 20090527
  Transmission Date: 20110831
  Serious: Yes (Hospitalization, Other)
  Sender: FDA-Public Use
  Company Number: THYM-1000914

PATIENT
  Age: 57 Year
  Sex: Male
  Weight: 83.7 kg

DRUGS (18)
  1. METHYLPREDNISOLONE [Concomitant]
  2. ACETAMINOPHEN [Concomitant]
  3. SEPTRA [Concomitant]
  4. ALBUMIN (HUMAN) [Concomitant]
  5. THYMOGLOBULIN [Suspect]
  6. PROPRANOLOL [Concomitant]
  7. VALCYTE [Concomitant]
  8. INSULIN (INSULIN) [Concomitant]
  9. PROGRAF [Concomitant]
  10. TACROLIMUS [Concomitant]
  11. FLUCONAZOLE [Concomitant]
  12. UNISOM [Concomitant]
  13. METHYLPREDNISOLONE [Concomitant]
  14. BENADRYL [Concomitant]
  15. NEXIUM IV [Concomitant]
  16. THYMOGLOBULIN [Suspect]
     Indication: PROPHYLAXIS AGAINST TRANSPLANT REJECTION
     Dosage: 150 MG, QOD, INTRAVENOUS
     Route: 042
     Dates: start: 20090203, end: 20090208
  17. THYMOGLOBULIN [Suspect]
     Indication: LIVER TRANSPLANT
     Dosage: 150 MG, QOD, INTRAVENOUS
     Route: 042
     Dates: start: 20090203, end: 20090208
  18. ANALGESIA (ANALGESIA) [Concomitant]

REACTIONS (5)
  - HYPOXIA [None]
  - RESPIRATORY DISTRESS [None]
  - CYTOKINE RELEASE SYNDROME [None]
  - TACHYCARDIA [None]
  - DYSPNOEA [None]
